FAERS Safety Report 6694839-X (Version None)
Quarter: 2010Q2

REPORT INFORMATION
  Report Type: 
  Country: None (occurrence: None)
  Receive Date: 20100420
  Receipt Date: 20100409
  Transmission Date: 20101027
  Serious: Yes (Other)
  Sender: FDA-Public Use
  Company Number: UKP10000044

PATIENT
  Age: 71 Year
  Sex: Female

DRUGS (7)
  1. ACTONEL [Suspect]
     Indication: OSTEOPOROSIS
     Dosage: ORAL
     Route: 048
     Dates: start: 20100128, end: 20100201
  2. ADCAL D3 (CALCIUM CARBONATE, COLECALCIFEROL) [Concomitant]
  3. ALENDRONATE SODIUM [Concomitant]
  4. CANDESARTAN CILEXETIL [Concomitant]
  5. CLENIL /00212602/ (BECLOMETASONE DIPROPIONATE) [Concomitant]
  6. GAVISCON /00237601/ (ALGINIC ACID, ALUMINIUM HYDROXIDE GEL, DRIED, MAG [Concomitant]
  7. VENTOLIN [Concomitant]

REACTIONS (1)
  - POLYMYALGIA RHEUMATICA [None]
